FAERS Safety Report 7351316-0 (Version None)
Quarter: 2011Q1

REPORT INFORMATION
  Report Type: 
  Country: None (occurrence: None)
  Receive Date: 20110314
  Receipt Date: 20110228
  Transmission Date: 20110831
  Serious: Yes (Disabling, Other)
  Sender: FDA-Public Use
  Company Number: PHHY2011US11645

PATIENT
  Sex: Female
  Weight: 58.957 kg

DRUGS (2)
  1. RECLAST [Suspect]
     Indication: OSTEOPOROSIS
     Dosage: UNK
     Route: 042
     Dates: start: 20110125
  2. WELLBUTRIN [Concomitant]
     Indication: DEPRESSION
     Dosage: 100 MG, BID
     Route: 048
     Dates: start: 20110125, end: 20110207

REACTIONS (8)
  - MYALGIA [None]
  - PRURITUS [None]
  - AGITATION [None]
  - BONE PAIN [None]
  - MUSCULOSKELETAL DISORDER [None]
  - ARTHRALGIA [None]
  - HYPERHIDROSIS [None]
  - PAIN OF SKIN [None]
